FAERS Safety Report 22649070 (Version 2)
Quarter: 2023Q2

REPORT INFORMATION
  Report Type: Spontaneous
  Country: US (occurrence: US)
  Receive Date: 20230628
  Receipt Date: 20230630
  Transmission Date: 20230722
  Serious: No
  Sender: FDA-Public Use
  Company Number: US-PFIZER INC-202300229221

PATIENT
  Age: 12 Year
  Sex: Male

DRUGS (1)
  1. GENOTROPIN [Suspect]
     Active Substance: SOMATROPIN
     Dosage: 2.2 MG, (7 DAYS/WK)

REACTIONS (4)
  - Device mechanical issue [Unknown]
  - Device issue [Unknown]
  - Device delivery system issue [Unknown]
  - Device breakage [Unknown]
